FAERS Safety Report 5856063-X (Version None)
Quarter: 2008Q3

REPORT INFORMATION
  Report Type: 
  Country: None (occurrence: None)
  Receive Date: 20080825
  Receipt Date: 20080815
  Transmission Date: 20090109
  Serious: Yes (Other)
  Sender: FDA-Public Use
  Company Number: TR-TEVA-175997ISR

PATIENT
  Age: 53 Year
  Sex: Female

DRUGS (2)
  1. PACLITAXEL [Suspect]
     Indication: BREAST CANCER
     Route: 042
  2. METHOTREXATE [Suspect]
     Indication: BREAST CANCER
     Route: 037

REACTIONS (1)
  - CEREBRAL ISCHAEMIA [None]
